FAERS Safety Report 7125792-2 (Version None)
Quarter: 2010Q4

REPORT INFORMATION
  Report Type: 
  Country: None (occurrence: None)
  Receive Date: 20101129
  Receipt Date: 20101116
  Transmission Date: 20110411
  Serious: Yes (Other)
  Sender: FDA-Public Use
  Company Number: B0686075A

PATIENT
  Age: 72 Year
  Sex: Male

DRUGS (4)
  1. LAMIVUDINE [Suspect]
     Dosage: 100MG PER DAY
     Route: 048
     Dates: start: 20050101, end: 20070101
  2. ADEFOVIR DIPIVOXIL KIT [Suspect]
     Dosage: 20MG PER DAY
     Route: 048
     Dates: start: 20070101
  3. CHEMOTHERAPY [Concomitant]
  4. INSULIN [Concomitant]

REACTIONS (11)
  - ALANINE AMINOTRANSFERASE ABNORMAL [None]
  - ASPARTATE AMINOTRANSFERASE ABNORMAL [None]
  - BLOOD BILIRUBIN ABNORMAL [None]
  - BLOOD CALCIUM ABNORMAL [None]
  - BLOOD CREATININE ABNORMAL [None]
  - BLOOD GLUCOSE ABNORMAL [None]
  - BLOOD PHOSPHORUS ABNORMAL [None]
  - BLOOD UREA ABNORMAL [None]
  - DRUG INEFFECTIVE [None]
  - PROTEIN TOTAL ABNORMAL [None]
  - RENAL INJURY [None]
